FAERS Safety Report 21984592 (Version 1)
Quarter: 2023Q1

REPORT INFORMATION
  Report Type: Spontaneous
  Country: CN (occurrence: CN)
  Receive Date: 20230213
  Receipt Date: 20230213
  Transmission Date: 20230417
  Serious: Yes (Hospitalization, Other)
  Sender: FDA-Public Use
  Company Number: CN-HALEON-CNCH2023APC006035

PATIENT

DRUGS (1)
  1. IBUPROFEN [Suspect]
     Active Substance: IBUPROFEN
     Indication: Antipyresis
     Dosage: 0.3 G, BID
     Route: 048
     Dates: start: 20230128, end: 20230129

REACTIONS (5)
  - Rash [Recovering/Resolving]
  - Pyrexia [Recovering/Resolving]
  - Rash macular [Recovering/Resolving]
  - Erythema multiforme [Recovering/Resolving]
  - Pruritus [Recovering/Resolving]

NARRATIVE: CASE EVENT DATE: 20230129
